FAERS Safety Report 4805505-7 (Version None)
Quarter: 2005Q4

REPORT INFORMATION
  Report Type: 
  Country: None (occurrence: None)
  Receive Date: 20051018
  Receipt Date: 20051007
  Transmission Date: 20060501
  Serious: Yes (Hospitalization, Other)
  Sender: FDA-Public Use
  Company Number: WAES 0510USA04830

PATIENT
  Age: 48 Year
  Sex: Male

DRUGS (16)
  1. DECADRON [Suspect]
     Indication: BRAIN OEDEMA
     Dosage: SEE IMAGE, PO
     Route: 048
     Dates: start: 20050223, end: 20050315
  2. DECADRON [Suspect]
     Indication: BRAIN OEDEMA
     Dosage: SEE IMAGE, PO
     Route: 048
     Dates: start: 20050316, end: 20050412
  3. DECADRON [Suspect]
     Indication: BRAIN OEDEMA
     Dosage: SEE IMAGE, PO
     Route: 048
     Dates: start: 20050413
  4. STUDY DRUG (UNSPECIFIED) [Suspect]
     Indication: GLIOBLASTOMA MULTIFORME
     Dosage: 150 MG/BID/PO
     Route: 048
     Dates: start: 20050324, end: 20050330
  5. STUDY DRUG (UNSPECIFIED) [Suspect]
     Indication: GLIOBLASTOMA MULTIFORME
     Dosage: 150 MG/BID/PO
     Route: 048
     Dates: start: 20050407, end: 20050413
  6. STUDY DRUG (UNSPECIFIED) [Suspect]
     Indication: GLIOBLASTOMA MULTIFORME
     Dosage: 150 MG/BID/PO
     Route: 048
     Dates: start: 20050421, end: 20050427
  7. STUDY DRUG (UNSPECIFIED) [Suspect]
     Indication: GLIOBLASTOMA MULTIFORME
     Dosage: 150 MG/BID/PO
     Route: 048
     Dates: start: 20050505, end: 20050510
  8. CAP TEMODAR [Suspect]
     Indication: GLIOBLASTOMA MULTIFORME
     Dosage: SEE IMAGE, PO
     Route: 048
     Dates: start: 20050317, end: 20050323
  9. CAP TEMODAR [Suspect]
     Indication: GLIOBLASTOMA MULTIFORME
     Dosage: SEE IMAGE, PO
     Route: 048
     Dates: start: 20050331, end: 20050405
  10. CAP TEMODAR [Suspect]
     Indication: GLIOBLASTOMA MULTIFORME
     Dosage: SEE IMAGE, PO
     Route: 048
     Dates: start: 20050414, end: 20050420
  11. CAP TEMODAR [Suspect]
     Indication: GLIOBLASTOMA MULTIFORME
     Dosage: SEE IMAGE, PO
     Route: 048
     Dates: start: 20050428, end: 20050502
  12. CAP TEMODAR [Suspect]
     Indication: GLIOBLASTOMA MULTIFORME
     Dosage: SEE IMAGE, PO
     Route: 048
     Dates: start: 20050503, end: 20050503
  13. KEPPRA [Concomitant]
  14. CYANOCOBALAMIN [Concomitant]
  15. IBUPROFEN [Concomitant]
  16. PYRIDOXINE HCL [Concomitant]

REACTIONS (8)
  - DEHYDRATION [None]
  - DIABETES MELLITUS [None]
  - DISEASE PROGRESSION [None]
  - DRUG DOSE OMISSION [None]
  - DYSARTHRIA [None]
  - HEMIPARESIS [None]
  - NEUTROPHIL COUNT DECREASED [None]
  - PLATELET COUNT DECREASED [None]
